FAERS Safety Report 7503302-5 (Version None)
Quarter: 2011Q2

REPORT INFORMATION
  Report Type: 
  Country: None (occurrence: None)
  Receive Date: 20110524
  Receipt Date: 20110524
  Transmission Date: 20111010
  Serious: Yes (Death)
  Sender: FDA-Public Use
  Company Number: None

PATIENT
  Age: 67 Year
  Sex: Male

DRUGS (7)
  1. DEXAMETHASONE [Concomitant]
  2. OMEPRAZOLE [Concomitant]
  3. CIPROFLOXACIN [Concomitant]
  4. COMPAZINE [Concomitant]
  5. ACYCLOVIR [Concomitant]
  6. REVLIMID [Suspect]
     Indication: MULTIPLE MYELOMA
     Dosage: 10MG DAILY ORALLY
     Route: 048
     Dates: start: 20100101, end: 20101101
  7. GABAPENTIN [Concomitant]

REACTIONS (1)
  - PNEUMONIA [None]
